FAERS Safety Report 6794743-2 (Version None)
Quarter: 2010Q2

REPORT INFORMATION
  Report Type: 
  Country: None (occurrence: None)
  Receive Date: 20100520
  Receipt Date: 20090831
  Transmission Date: 20101027
  Serious: Yes (Other)
  Sender: FDA-Public Use
  Company Number: 2009262425

PATIENT
  Age: 56 Year
  Sex: Female
  Weight: 72 kg

DRUGS (6)
  1. PROVERA [Suspect]
     Indication: HORMONE REPLACEMENT THERAPY
     Dosage: 2.5 MG, 1X/DAY, ORAL ; 2.5 MG, 1X/DAY, ORAL
     Route: 048
     Dates: start: 19950101, end: 19970701
  2. PROVERA [Suspect]
     Indication: HORMONE REPLACEMENT THERAPY
     Dosage: 2.5 MG, 1X/DAY, ORAL ; 2.5 MG, 1X/DAY, ORAL
     Route: 048
     Dates: start: 19980407, end: 19981001
  3. PREMARIN [Suspect]
     Dosage: 0.3 MG, 1X/DAY ; 0.3 MG, 1X/DAY
     Dates: start: 19950101, end: 19970701
  4. PREMARIN [Suspect]
     Dosage: 0.3 MG, 1X/DAY ; 0.3 MG, 1X/DAY
     Dates: start: 19980407, end: 19981001
  5. PREMPRO [Suspect]
     Indication: HORMONE REPLACEMENT THERAPY
     Dosage: 0.625/2.5MG
     Dates: start: 19970101, end: 19980407
  6. ZESTRIL [Concomitant]

REACTIONS (1)
  - BREAST CANCER FEMALE [None]
